FAERS Safety Report 8132456-5 (Version None)
Quarter: 2012Q1

REPORT INFORMATION
  Report Type: 
  Country: None (occurrence: None)
  Receive Date: 20120208
  Receipt Date: 20120125
  Transmission Date: 20120608
  Serious: Yes (Death, Other)
  Sender: FDA-Public Use
  Company Number: 1000027670

PATIENT
  Sex: Male

DRUGS (1)
  1. CITALOPRAM HYDROBROMIDE [Suspect]
     Indication: ANXIETY
     Dosage: ORAL
     Route: 048
     Dates: start: 20090101, end: 20090101

REACTIONS (1)
  - COMPLETED SUICIDE [None]
